FAERS Safety Report 10067899 (Version 2)
Quarter: 2014Q2

REPORT INFORMATION
  Report Type: Report from Study
  Country: GB (occurrence: GB)
  Receive Date: 20140409
  Receipt Date: 20140410
  Transmission Date: 20141212
  Serious: Yes (Hospitalization, Other)
  Sender: FDA-Public Use
  Company Number: GB-BAYER-2014-049912

PATIENT
  Sex: 0

DRUGS (3)
  1. CIPROFLOXACIN MONOHYDROCHLORIDE [Suspect]
     Indication: INFECTION PROPHYLAXIS
     Dosage: 500 MG, BID, STARTING 1 DAY BEFORE THE PROCEDURE
     Dates: start: 2011
  2. AMIKACIN [Concomitant]
     Indication: ANTIBIOTIC PROPHYLAXIS
     Dosage: 1 G, ONCE, IMMEDIATELY BEFORE THE PROCEDURE
     Route: 042
     Dates: start: 2011
  3. AMIKACIN [Concomitant]
     Indication: BIOPSY PROSTATE

REACTIONS (3)
  - Pathogen resistance [None]
  - Escherichia sepsis [None]
  - Off label use [None]
